FAERS Safety Report 6120298-1 (Version None)
Quarter: 2009Q1

REPORT INFORMATION
  Report Type: 
  Country: None (occurrence: None)
  Receive Date: 20090312
  Receipt Date: 20090225
  Transmission Date: 20090719
  Serious: Yes (Disabling)
  Sender: FDA-Public Use
  Company Number: 2009S1003338

PATIENT
  Age: 66 Year
  Weight: 63.5 kg

DRUGS (2)
  1. CITALOPRAM HYDROBROMIDE [Suspect]
     Indication: MENTAL DISORDER
     Dosage: 20 MG; ORAL
     Route: 048
     Dates: start: 20000101, end: 20080101
  2. ZOPICLONE [Concomitant]

REACTIONS (2)
  - SJOGREN'S SYNDROME [None]
  - WITHDRAWAL SYNDROME [None]
